FAERS Safety Report 11614254 (Version 1)
Quarter: 2015Q4

REPORT INFORMATION
  Report Type: Spontaneous
  Country: BR (occurrence: BR)
  Receive Date: 20151008
  Receipt Date: 20151008
  Transmission Date: 20160304
  Serious: Yes (Other)
  Sender: FDA-Public Use
  Company Number: BR-BAXALTA-2015BLT002056

PATIENT
  Age: 23 Month
  Sex: Male

DRUGS (1)
  1. HEMOVIIIR [Suspect]
     Active Substance: ANTIHEMOPHILIC FACTOR, HUMAN RECOMBINANT
     Indication: HAEMORRHAGE PROPHYLAXIS
     Dosage: 500 IU, 1X A WEEK
     Route: 065
     Dates: start: 201411

REACTIONS (3)
  - Pyrexia [Unknown]
  - Factor VIII inhibition [Unknown]
  - Post procedural haemorrhage [Unknown]

NARRATIVE: CASE EVENT DATE: 20150720
